FAERS Safety Report 11919511 (Version 1)
Quarter: 2016Q1

REPORT INFORMATION
  Report Type: Spontaneous
  Country: US (occurrence: US)
  Receive Date: 20160115
  Receipt Date: 20160115
  Transmission Date: 20160526
  Serious: No
  Sender: FDA-Public Use
  Company Number: US-ASTRAZENECA-2013SE82029

PATIENT
  Age: 16874 Day
  Sex: Female
  Weight: 62.6 kg

DRUGS (33)
  1. CARDURA [Concomitant]
     Active Substance: DOXAZOSIN MESYLATE
     Route: 048
  2. ESTRADIOL. [Suspect]
     Active Substance: ESTRADIOL
     Route: 062
  3. ESTRACE [Suspect]
     Active Substance: ESTRADIOL
     Dosage: TWO TIMES A WEEK
     Route: 061
  4. BYDUREON [Suspect]
     Active Substance: EXENATIDE
     Indication: TYPE 2 DIABETES MELLITUS
     Route: 058
     Dates: start: 20131109
  5. CLONIDINE. [Concomitant]
     Active Substance: CLONIDINE
     Indication: HYPERTENSION
     Route: 048
  6. ZOCOR [Concomitant]
     Active Substance: SIMVASTATIN
     Route: 048
  7. TEGRETOL [Concomitant]
     Active Substance: CARBAMAZEPINE
     Indication: PROPHYLAXIS
     Route: 048
  8. CLONIDINE. [Concomitant]
     Active Substance: CLONIDINE
     Indication: HYPERTENSION
     Route: 048
  9. BYETTA [Suspect]
     Active Substance: EXENATIDE
     Indication: TYPE 2 DIABETES MELLITUS
     Dosage: TWO TIMES A DAY
     Route: 058
     Dates: start: 2005, end: 2012
  10. ROBAXIN [Concomitant]
     Active Substance: METHOCARBAMOL
  11. SINEQUAN [Concomitant]
     Active Substance: DOXEPIN HYDROCHLORIDE
     Indication: SLEEP DISORDER
     Route: 048
  12. WELLBUTRIN SR [Concomitant]
     Active Substance: BUPROPION HYDROCHLORIDE
     Route: 048
  13. PROMETRIUM [Concomitant]
     Active Substance: PROGESTERONE
  14. NORVASC [Concomitant]
     Active Substance: AMLODIPINE BESYLATE
     Route: 048
  15. DEMECLOCYCLINE [Concomitant]
     Active Substance: DEMECLOCYCLINE
     Indication: INAPPROPRIATE ANTIDIURETIC HORMONE SECRETION
     Route: 048
  16. TEGRETOL [Concomitant]
     Active Substance: CARBAMAZEPINE
     Indication: PROPHYLAXIS
     Route: 048
  17. TEMAZEPAM. [Concomitant]
     Active Substance: TEMAZEPAM
     Route: 048
  18. ACEBUTOLOL [Concomitant]
     Active Substance: ACEBUTOLOL
     Indication: HYPERTENSION
     Route: 048
  19. ASPIRIN. [Concomitant]
     Active Substance: ASPIRIN
     Indication: PROPHYLAXIS
     Route: 048
  20. BYETTA [Suspect]
     Active Substance: EXENATIDE
     Indication: TYPE 2 DIABETES MELLITUS
     Route: 058
     Dates: start: 20131109
  21. BYDUREON [Suspect]
     Active Substance: EXENATIDE
     Indication: TYPE 2 DIABETES MELLITUS
     Dosage: 2 MG, ONCE A WEEK (BYDUREON PEN)
     Route: 058
     Dates: start: 2013
  22. LANTUS [Suspect]
     Active Substance: INSULIN GLARGINE
     Indication: TYPE 3 DIABETES MELLITUS
     Route: 058
  23. MEPERIDINE [Concomitant]
     Active Substance: MEPERIDINE
  24. GLUCOPHAGE [Concomitant]
     Active Substance: METFORMIN HYDROCHLORIDE
     Route: 048
  25. COZAAR [Concomitant]
     Active Substance: LOSARTAN POTASSIUM
     Route: 048
  26. DEMECLOCYCLINE [Concomitant]
     Active Substance: DEMECLOCYCLINE
     Indication: INAPPROPRIATE ANTIDIURETIC HORMONE SECRETION
     Route: 048
  27. ESTROGEN [Concomitant]
     Active Substance: ESTRONE\SUS SCROFA OVARY
  28. NOVOLOG, INSULIN [Concomitant]
     Indication: TYPE 3 DIABETES MELLITUS
     Dosage: DAILY
     Route: 058
  29. HYDROMORPHONE [Concomitant]
     Active Substance: HYDROMORPHONE
     Indication: PROPHYLAXIS
  30. BYDUREON [Suspect]
     Active Substance: EXENATIDE
     Indication: TYPE 2 DIABETES MELLITUS
     Route: 058
     Dates: start: 20060922, end: 200610
  31. BYDUREON [Suspect]
     Active Substance: EXENATIDE
     Indication: TYPE 2 DIABETES MELLITUS
     Dosage: 2 MG, ONCE A WEEK (BYDUREON KIT)
     Route: 058
     Dates: start: 2012, end: 2013
  32. HUMALOG [Suspect]
     Active Substance: INSULIN LISPRO
     Route: 065
  33. PRILOSEC [Concomitant]
     Active Substance: OMEPRAZOLE MAGNESIUM
     Route: 048

REACTIONS (21)
  - Injection site nodule [Unknown]
  - Rash pruritic [Recovered/Resolved]
  - Hypoaesthesia [Recovered/Resolved]
  - Early satiety [Not Recovered/Not Resolved]
  - Product use issue [Not Recovered/Not Resolved]
  - Underdose [Recovered/Resolved]
  - Drug ineffective [Recovered/Resolved]
  - Intentional device misuse [Not Recovered/Not Resolved]
  - Drug dose omission [Unknown]
  - Sneezing [Unknown]
  - Nausea [Recovered/Resolved]
  - Blood glucose increased [Recovered/Resolved]
  - Nasal congestion [Unknown]
  - Rash [Unknown]
  - Injection site pain [Unknown]
  - Injection site pain [Not Recovered/Not Resolved]
  - Injection site extravasation [Recovering/Resolving]
  - Insomnia [Recovered/Resolved]
  - Feeling cold [Recovered/Resolved]
  - Hunger [Not Recovered/Not Resolved]
  - Injection site pruritus [Not Recovered/Not Resolved]

NARRATIVE: CASE EVENT DATE: 20061108
